FAERS Safety Report 7226367-7 (Version None)
Quarter: 2011Q1

REPORT INFORMATION
  Report Type: 
  Country: None (occurrence: None)
  Receive Date: 20110114
  Receipt Date: 20110110
  Transmission Date: 20110831
  Serious: Yes (Other)
  Sender: FDA-Public Use
  Company Number: CHPA2011CA00800

PATIENT
  Age: 58 Year
  Sex: Male
  Weight: 90.703 kg

DRUGS (5)
  1. HABITROL [Suspect]
     Dosage: 7 MG, QD
     Route: 062
     Dates: start: 19900101, end: 19900101
  2. LIPITOR [Concomitant]
     Indication: BLOOD CHOLESTEROL ABNORMAL
     Route: 048
  3. HABITROL [Suspect]
     Indication: SMOKING CESSATION THERAPY
     Dosage: UNK, UNK
     Route: 062
     Dates: start: 20110101
  4. HABITROL [Suspect]
     Dosage: 14 MG, QD
     Route: 062
     Dates: start: 19900101, end: 19900101
  5. HABITROL [Suspect]
     Dosage: 21 MG, QD
     Route: 062
     Dates: start: 19900101, end: 19900101

REACTIONS (6)
  - HYPERTENSION [None]
  - HYPOTHYROIDISM [None]
  - DISTURBANCE IN ATTENTION [None]
  - NERVOUSNESS [None]
  - OVERDOSE [None]
  - TREATMENT NONCOMPLIANCE [None]
